FAERS Safety Report 8306688-7 (Version None)
Quarter: 2012Q2

REPORT INFORMATION
  Report Type: 
  Country: None (occurrence: None)
  Receive Date: 20120424
  Receipt Date: 20120417
  Transmission Date: 20120825
  Serious: Yes (Hospitalization)
  Sender: FDA-Public Use
  Company Number: US-BAYER-2012-038652

PATIENT
  Age: 31 Year
  Sex: Female
  Weight: 73.923 kg

DRUGS (5)
  1. MULTI-VITAMIN [Concomitant]
     Dosage: DAILY
  2. YASMIN [Suspect]
  3. LORATADINE [Concomitant]
     Dosage: UNK UNK, PRN
     Dates: start: 20080826, end: 20110711
  4. IBUPROFEN [Concomitant]
     Dosage: 600 MG, UNK
     Dates: start: 20110419
  5. POTASSIUM CHLORIDE [Concomitant]
     Dosage: UNK
     Dates: start: 20110531

REACTIONS (2)
  - DEEP VEIN THROMBOSIS [None]
  - PULMONARY EMBOLISM [None]
